FAERS Safety Report 8103529-8 (Version None)
Quarter: 2012Q1

REPORT INFORMATION
  Report Type: 
  Country: None (occurrence: None)
  Receive Date: 20120201
  Receipt Date: 20120126
  Transmission Date: 20120608
  Serious: Yes (Other)
  Sender: FDA-Public Use
  Company Number: PHEH2012US002465

PATIENT
  Age: 19 Year
  Sex: Female

DRUGS (1)
  1. TOBI [Suspect]
     Dosage: 300 MG, BID
     Dates: start: 20111223, end: 20120119

REACTIONS (6)
  - APNOEA [None]
  - BLOOD PRESSURE DECREASED [None]
  - SEDATION [None]
  - LOSS OF CONSCIOUSNESS [None]
  - LETHARGY [None]
  - DYSURIA [None]
